FAERS Safety Report 20584875 (Version 3)
Quarter: 2022Q2

REPORT INFORMATION
  Report Type: Report from Study
  Country: US (occurrence: US)
  Receive Date: 20220311
  Receipt Date: 20220614
  Transmission Date: 20220721
  Serious: No
  Sender: FDA-Public Use
  Company Number: US-NOVARTISTESTPH-NVSC2022US056620

PATIENT
  Sex: Male

DRUGS (1)
  1. COSENTYX [Suspect]
     Active Substance: SECUKINUMAB
     Indication: Psoriasis
     Dosage: 300 MG QW(ONCE A WEEK FOR 5 WEEKS AND THEN Q 4)
     Route: 058

REACTIONS (5)
  - Palpitations [Recovering/Resolving]
  - Abdominal pain upper [Recovering/Resolving]
  - Suspected COVID-19 [Unknown]
  - COVID-19 [Recovered/Resolved]
  - Infection [Recovering/Resolving]
